FAERS Safety Report 11714945 (Version 1)
Quarter: 2015Q4

REPORT INFORMATION
  Report Type: Spontaneous
  Country: IT (occurrence: IT)
  Receive Date: 20151109
  Receipt Date: 20151109
  Transmission Date: 20160304
  Serious: Yes (Other)
  Sender: FDA-Public Use
  Company Number: IT-SUPERNUS PHARMACEUTICALS, INC.-2015SUP00117

PATIENT
  Age: 7 Year
  Sex: Male

DRUGS (1)
  1. OXCARBAZEPINE. [Suspect]
     Active Substance: OXCARBAZEPINE
     Indication: BENIGN ROLANDIC EPILEPSY
     Dosage: UNK

REACTIONS (3)
  - Petit mal epilepsy [Recovered/Resolved]
  - Encephalopathy [Recovering/Resolving]
  - Status epilepticus [Recovered/Resolved]
